FAERS Safety Report 21225464 (Version 1)
Quarter: 2022Q3

REPORT INFORMATION
  Report Type: Spontaneous
  Country: US (occurrence: US)
  Receive Date: 20220818
  Receipt Date: 20220818
  Transmission Date: 20221027
  Serious: Yes (Other)
  Sender: FDA-Public Use
  Company Number: US-SUN PHARMACEUTICAL INDUSTRIES LTD-2022R1-348972

PATIENT
  Age: 60 Year
  Sex: Male

DRUGS (5)
  1. DULOXETINE [Interacting]
     Active Substance: DULOXETINE
     Indication: Major depression
     Dosage: 120 MILLIGRAM, DAILY
     Route: 065
  2. FLUOXETINE [Interacting]
     Active Substance: FLUOXETINE HYDROCHLORIDE
     Indication: Major depression
  3. GABAPENTIN [Interacting]
     Active Substance: GABAPENTIN
     Indication: Major depression
  4. MIRTAZAPINE [Interacting]
     Active Substance: MIRTAZAPINE
     Indication: Major depression
     Dosage: 7.5 MILLIGRAM, DAILY
     Route: 065
  5. METHYLENE BLUE [Interacting]
     Active Substance: METHYLENE BLUE
     Indication: Product used for unknown indication
     Route: 042

REACTIONS (2)
  - Serotonin syndrome [Unknown]
  - Drug interaction [Unknown]
